FAERS Safety Report 6066905-3 (Version None)
Quarter: 2009Q1

REPORT INFORMATION
  Report Type: 
  Country: None (occurrence: None)
  Receive Date: 20090205
  Receipt Date: 20080917
  Transmission Date: 20090719
  Serious: No
  Sender: FDA-Public Use
  Company Number: US-ABBOTT-08P-163-0476854-00

PATIENT
  Age: 18 Year
  Sex: Male

DRUGS (7)
  1. VICODIN [Suspect]
     Indication: DRUG USE FOR UNKNOWN INDICATION
     Dates: end: 20080101
  2. MORPHINE SULFATE [Suspect]
     Indication: DRUG USE FOR UNKNOWN INDICATION
     Dates: end: 20080101
  3. OXYCODONE HYDROCHLORIDE [Suspect]
     Indication: DRUG USE FOR UNKNOWN INDICATION
     Dates: end: 20080101
  4. TYLOX [Suspect]
     Indication: DRUG USE FOR UNKNOWN INDICATION
     Dates: end: 20080101
  5. MORPHINE SULFATE [Concomitant]
  6. OXYCODONE HYDROCHLORIDE [Concomitant]
  7. TYLOX [Concomitant]

REACTIONS (5)
  - DRUG ABUSE [None]
  - DRUG WITHDRAWAL SYNDROME [None]
  - HYPOPHAGIA [None]
  - INSOMNIA [None]
  - MALAISE [None]
